FAERS Safety Report 6385825-8 (Version None)
Quarter: 2009Q4

REPORT INFORMATION
  Report Type: 
  Country: None (occurrence: None)
  Receive Date: 20091002
  Receipt Date: 20090923
  Transmission Date: 20100525
  Serious: Yes (Other)
  Sender: FDA-Public Use
  Company Number: AU-PFIZER INC-2009260331

PATIENT
  Age: 63 Year

DRUGS (8)
  1. LIPITOR [Suspect]
     Indication: BLOOD CHOLESTEROL
     Dosage: 10 MG, 1X/DAY
     Route: 048
     Dates: start: 20090717, end: 20090810
  2. ASMOL [Concomitant]
     Indication: ASTHMA
     Dosage: UNK
  3. SYMBICORT [Concomitant]
     Indication: ASTHMA
     Dosage: 200/6 TWO DOSES TWICE DAILY
     Route: 048
  4. PULMICORT [Concomitant]
     Indication: ASTHMA
     Dosage: UNK, AT NIGHT
  5. IMIGRAN [Concomitant]
     Indication: MIGRAINE
     Dosage: UNK
  6. FOSAMAX [Concomitant]
     Indication: OSTEOPOROSIS
     Dosage: 70 MG, WEEKLY
     Route: 048
  7. ENDEP [Concomitant]
     Dosage: 12.5 MG, 1X/DAY
     Route: 048
  8. VENTOLIN [Concomitant]
     Indication: ASTHMA
     Dosage: UNK
     Route: 048

REACTIONS (2)
  - DYSPNOEA [None]
  - PRODUCTIVE COUGH [None]
